FAERS Safety Report 6786341-1 (Version None)
Quarter: 2010Q2

REPORT INFORMATION
  Report Type: 
  Country: None (occurrence: None)
  Receive Date: 20100623
  Receipt Date: 20100612
  Transmission Date: 20101027
  Serious: Yes (Other)
  Sender: FDA-Public Use
  Company Number: PHHY2010BR38813

PATIENT
  Sex: Male

DRUGS (1)
  1. TRILEPTAL [Suspect]
     Dosage: 600 MG DAILY

REACTIONS (5)
  - FLUID RETENTION [None]
  - GASTROINTESTINAL DISORDER [None]
  - MOUTH ULCERATION [None]
  - SWELLING [None]
  - URINARY TRACT INFECTION [None]
